FAERS Safety Report 8125738-4 (Version None)
Quarter: 2012Q1

REPORT INFORMATION
  Report Type: 
  Country: None (occurrence: None)
  Receive Date: 20120209
  Receipt Date: 20120206
  Transmission Date: 20120608
  Serious: Yes (Other)
  Sender: FDA-Public Use
  Company Number: US-PFIZER INC-2012032845

PATIENT
  Sex: Female

DRUGS (8)
  1. PRISTIQ [Suspect]
     Dosage: 50 MG Q AM
  2. LAMICTAL [Concomitant]
     Dosage: UNK
  3. SUMATRIPTAN [Concomitant]
     Dosage: UNK
  4. ADDERALL XR 10 [Concomitant]
     Dosage: UNK
  5. NAPROXEN [Concomitant]
     Dosage: UNK
  6. KLONOPIN [Concomitant]
     Dosage: UNK
  7. EFFEXOR XR [Suspect]
     Indication: DEPRESSION
     Dosage: UNK
  8. VITAMIN D [Concomitant]
     Dosage: UNK

REACTIONS (4)
  - LIMB OPERATION [None]
  - EMOTIONAL DISORDER [None]
  - DRUG EFFECT DECREASED [None]
  - KNEE OPERATION [None]
